FAERS Safety Report 17373985 (Version 1)
Quarter: 2020Q1

REPORT INFORMATION
  Report Type: Spontaneous
  Country: US (occurrence: US)
  Receive Date: 20200204
  Receipt Date: 20200204
  Transmission Date: 20200409
  Serious: No
  Sender: FDA-Public Use
  Company Number: None

PATIENT
  Age: 62 Year
  Sex: Male

DRUGS (1)
  1. CEFTAROLINE [Suspect]
     Active Substance: CEFTAROLINE
     Route: 042
     Dates: start: 20200130, end: 20200201

REACTIONS (1)
  - Drug eruption [None]

NARRATIVE: CASE EVENT DATE: 20200130
